FAERS Safety Report 4668111-3 (Version None)
Quarter: 2005Q2

REPORT INFORMATION
  Report Type: 
  Country: None (occurrence: None)
  Receive Date: 20050521
  Receipt Date: 20050224
  Transmission Date: 20051028
  Serious: Yes (Other)
  Sender: FDA-Public Use
  Company Number: PHNU2005DE01094

PATIENT
  Age: 49 Year
  Sex: Male

DRUGS (2)
  1. AREDIA [Suspect]
     Dosage: UNK, UNK
     Dates: start: 20010222, end: 20020101
  2. ZOMETA [Suspect]
     Dosage: 4 MG, QMO
     Dates: start: 20021106, end: 20040801

REACTIONS (3)
  - JAW DISORDER [None]
  - OSTEOMYELITIS [None]
  - OSTEONECROSIS [None]
